FAERS Safety Report 18108312 (Version 4)
Quarter: 2020Q3

REPORT INFORMATION
  Report Type: Report from Study
  Country: US (occurrence: US)
  Receive Date: 20200804
  Receipt Date: 20200901
  Transmission Date: 20201103
  Serious: No
  Sender: FDA-Public Use
  Company Number: NVSC2020US215888

PATIENT
  Sex: Female

DRUGS (2)
  1. ENTRESTO [Suspect]
     Active Substance: SACUBITRIL\VALSARTAN
     Indication: DIZZINESS
     Dosage: 49.51 MG, BID
     Route: 048
  2. ENTRESTO [Suspect]
     Active Substance: SACUBITRIL\VALSARTAN
     Indication: CARDIAC FAILURE CHRONIC
     Dosage: 49.51 MG, BID
     Route: 048

REACTIONS (8)
  - Weight increased [Unknown]
  - Illness [Unknown]
  - Product use in unapproved indication [Unknown]
  - Stress [Unknown]
  - Blood cholesterol decreased [Unknown]
  - Weight decreased [Unknown]
  - Dizziness [Recovered/Resolved]
  - Blood cholesterol increased [Recovering/Resolving]
